FAERS Safety Report 13826548 (Version 1)
Quarter: 2017Q3

REPORT INFORMATION
  Report Type: Spontaneous
  Country: US (occurrence: US)
  Receive Date: 20170802
  Receipt Date: 20170802
  Transmission Date: 20171127
  Serious: No
  Sender: FDA-Public Use
  Company Number: US-ROCHE-642405

PATIENT
  Age: 66 Year
  Sex: Female

DRUGS (1)
  1. BONIVA [Suspect]
     Active Substance: IBANDRONATE SODIUM
     Indication: OSTEOPOROSIS
     Route: 048
     Dates: start: 20080701, end: 20090701

REACTIONS (4)
  - Abdominal rigidity [Not Recovered/Not Resolved]
  - Dyspepsia [Unknown]
  - Abdominal distension [Not Recovered/Not Resolved]
  - Waist circumference increased [Not Recovered/Not Resolved]

NARRATIVE: CASE EVENT DATE: 20080701
